FAERS Safety Report 4976658-5 (Version None)
Quarter: 2006Q2

REPORT INFORMATION
  Report Type: 
  Country: None (occurrence: None)
  Receive Date: 20060419
  Receipt Date: 20050401
  Transmission Date: 20061013
  Serious: Yes (Hospitalization)
  Sender: FDA-Public Use
  Company Number: US-MERCK-0504USA00497

PATIENT
  Age: 26 Year
  Sex: Male
  Weight: 68 kg

DRUGS (3)
  1. VIOXX [Suspect]
     Indication: PAIN IN EXTREMITY
     Route: 048
     Dates: start: 20030201
  2. VIOXX [Suspect]
     Route: 048
     Dates: start: 20030506
  3. IBUPROFEN [Concomitant]
     Route: 065

REACTIONS (27)
  - BACK PAIN [None]
  - BIOPSY KIDNEY [None]
  - DIZZINESS [None]
  - FATIGUE [None]
  - GLOMERULONEPHRITIS [None]
  - HEADACHE [None]
  - HYPERCOAGULATION [None]
  - HYPERLIPIDAEMIA [None]
  - HYPERTENSION [None]
  - HYPOAESTHESIA [None]
  - HYPOALBUMINAEMIA [None]
  - HYPOCALCAEMIA [None]
  - HYPOPROTEINAEMIA [None]
  - INJURY [None]
  - INTERVERTEBRAL DISC PROTRUSION [None]
  - LEUKOCYTOSIS [None]
  - LUNG CONSOLIDATION [None]
  - NAUSEA [None]
  - NEPHROTIC SYNDROME [None]
  - PALPITATIONS [None]
  - PLEURAL EFFUSION [None]
  - PROTEINURIA [None]
  - PULMONARY EMBOLISM [None]
  - THROMBOCYTHAEMIA [None]
  - THYROID FUNCTION TEST ABNORMAL [None]
  - VISION BLURRED [None]
  - VOMITING [None]
